FAERS Safety Report 10530513 (Version 1)
Quarter: 2014Q4

REPORT INFORMATION
  Report Type: Spontaneous
  Country: US (occurrence: US)
  Receive Date: 20141021
  Receipt Date: 20141021
  Transmission Date: 20150528
  Serious: Yes (Hospitalization, Other)
  Sender: FDA-Public Use
  Company Number: US-PFIZER INC-2014284736

PATIENT
  Age: 41 Year
  Sex: Male

DRUGS (4)
  1. NANDROLONE [Suspect]
     Active Substance: NANDROLONE
     Dosage: 400 MG, 2X/WEEK
  2. TESTOSTERONE CIPIONATE [Suspect]
     Active Substance: TESTOSTERONE
     Dosage: 400 MG, WEEKLY
  3. IBUPROFEN. [Concomitant]
     Active Substance: IBUPROFEN
     Dosage: 200 MG, APPROX ONE-TWO TIMES PER MONTH
  4. METHANDROSTENOLONE [Suspect]
     Active Substance: METHANDROSTENOLONE
     Dosage: 60 MG, DAILY
     Route: 048

REACTIONS (4)
  - Cholestasis [Recovering/Resolving]
  - Drug abuse [Unknown]
  - Renal tubular disorder [Recovering/Resolving]
  - Acute kidney injury [Recovering/Resolving]
